FAERS Safety Report 10513836 (Version 2)
Quarter: 2014Q4

REPORT INFORMATION
  Report Type: Spontaneous
  Country: JP (occurrence: JP)
  Receive Date: 20141013
  Receipt Date: 20141106
  Transmission Date: 20150528
  Serious: Yes (Life-Threatening)
  Sender: FDA-Public Use
  Company Number: JP-EISAI MEDICAL RESEARCH-EC-2014-000766

PATIENT
  Age: 88 Year
  Sex: Female
  Weight: 68 kg

DRUGS (12)
  1. ARICEPT [Suspect]
     Active Substance: DONEPEZIL HYDROCHLORIDE
     Indication: DEMENTIA ALZHEIMER^S TYPE
     Route: 048
     Dates: start: 20140928, end: 20141004
  2. AMLODIN [Concomitant]
     Active Substance: AMLODIPINE BESYLATE
  3. MUCOSOLVAN [Concomitant]
     Active Substance: AMBROXOL\CLENBUTEROL
  4. GASTER [Concomitant]
     Active Substance: FAMOTIDINE
  5. CELECOX [Concomitant]
     Active Substance: CELECOXIB
  6. DIART [Concomitant]
     Active Substance: AZOSEMIDE
  7. VESICARE [Concomitant]
     Active Substance: SOLIFENACIN SUCCINATE
  8. XARELTO [Concomitant]
     Active Substance: RIVAROXABAN
  9. MAGLAX [Concomitant]
     Active Substance: MAGNESIUM OXIDE
  10. ARICEPT [Suspect]
     Active Substance: DONEPEZIL HYDROCHLORIDE
     Route: 048
     Dates: start: 20141005, end: 20141006
  11. HALFDIGOXIN [Concomitant]
     Active Substance: DIGOXIN
     Route: 048
  12. TSUMURA [Concomitant]

REACTIONS (2)
  - Cardiac arrest [Recovered/Resolved]
  - Seizure [Recovered/Resolved]

NARRATIVE: CASE EVENT DATE: 20141005
